FAERS Safety Report 6638746-7 (Version None)
Quarter: 2010Q1

REPORT INFORMATION
  Report Type: 
  Country: None (occurrence: None)
  Receive Date: 20100317
  Receipt Date: 20100309
  Transmission Date: 20100710
  Serious: Yes (Hospitalization)
  Sender: FDA-Public Use
  Company Number: US-SANOFI-AVENTIS-2010SA013568

PATIENT
  Age: 85 Year
  Sex: Female
  Weight: 56.7 kg

DRUGS (4)
  1. ELOXATIN [Suspect]
     Dosage: EVERY OTHER WEEK
     Route: 041
     Dates: start: 20100126, end: 20100126
  2. ELOXATIN [Suspect]
     Dosage: EVERY OTHER WEEK
     Route: 041
     Dates: start: 20100222, end: 20100222
  3. AVASTIN [Suspect]
     Dosage: EVERY OTHER WEEK
     Route: 041
     Dates: start: 20100126, end: 20100126
  4. AVASTIN [Suspect]
     Dosage: EVERY OTHER WEEK
     Route: 041
     Dates: start: 20100222, end: 20100222

REACTIONS (1)
  - LARGE INTESTINE PERFORATION [None]
